FAERS Safety Report 6728163-3 (Version None)
Quarter: 2010Q2

REPORT INFORMATION
  Report Type: 
  Country: None (occurrence: None)
  Receive Date: 20100517
  Receipt Date: 20100511
  Transmission Date: 20101027
  Serious: Yes (Other)
  Sender: FDA-Public Use
  Company Number: A0859155A

PATIENT
  Sex: Female

DRUGS (9)
  1. TREXIMET [Suspect]
     Indication: MIGRAINE
     Dosage: 2TAB SINGLE DOSE
     Route: 048
     Dates: start: 20100507, end: 20100507
  2. SYNTHROID [Concomitant]
  3. PREDNISONE [Concomitant]
  4. METFORMIN HYDROCHLORIDE [Concomitant]
  5. VESICARE [Concomitant]
  6. PHENERGAN [Concomitant]
  7. DILAUDID [Concomitant]
  8. ELMIRON [Concomitant]
  9. YAZ [Concomitant]

REACTIONS (1)
  - BLINDNESS [None]
